FAERS Safety Report 14043405 (Version 1)
Quarter: 2017Q4

REPORT INFORMATION
  Report Type: Spontaneous
  Country: US (occurrence: US)
  Receive Date: 20171004
  Receipt Date: 20171004
  Transmission Date: 20180321
  Serious: No
  Sender: FDA-Public Use
  Company Number: US-INDIVIOR LIMITED-INDV-096477-2016

PATIENT
  Age: 22 Year
  Sex: Female

DRUGS (3)
  1. HEROIN [Suspect]
     Active Substance: DIAMORPHINE
     Indication: PRODUCT USED FOR UNKNOWN INDICATION
     Dosage: UNK
     Route: 065
  2. SUBOXONE [Suspect]
     Active Substance: BUPRENORPHINE HYDROCHLORIDE\NALOXONE HYDROCHLORIDE
     Indication: DRUG USE DISORDER
     Dosage: 2 MG, ONCE, BY CUTTING (HOWEVER WAS PRESCRIBED 4 MG THRICE DAILY)
     Route: 060
     Dates: start: 20161109, end: 20161109
  3. TRAMADOL. [Suspect]
     Active Substance: TRAMADOL
     Indication: PRODUCT USED FOR UNKNOWN INDICATION
     Dosage: UNK
     Route: 065

REACTIONS (8)
  - Product use issue [Recovered/Resolved]
  - Drug abuse [Unknown]
  - Product preparation error [Unknown]
  - Drug withdrawal syndrome [Not Recovered/Not Resolved]
  - Cold sweat [Unknown]
  - Anxiety [Unknown]
  - Intentional underdose [Unknown]
  - Formication [Unknown]

NARRATIVE: CASE EVENT DATE: 201611
